FAERS Safety Report 16927830 (Version 3)
Quarter: 2020Q1

REPORT INFORMATION
  Report Type: Report from Study
  Country: None (occurrence: US)
  Receive Date: 20191017
  Receipt Date: 20200102
  Transmission Date: 20200409
  Serious: Yes (Other)
  Sender: FDA-Public Use
  Company Number: US-ABBVIE-19K-163-2957976-00

PATIENT
  Sex: Female
  Weight: 44.49 kg

DRUGS (3)
  1. FLUCONAZOLE. [Concomitant]
     Active Substance: FLUCONAZOLE
     Indication: PRODUCT USED FOR UNKNOWN INDICATION
  2. METHYLPREDNISOLONE. [Concomitant]
     Active Substance: METHYLPREDNISOLONE
     Indication: PRODUCT USED FOR UNKNOWN INDICATION
     Dosage: D
  3. HUMIRA [Suspect]
     Active Substance: ADALIMUMAB
     Indication: CROHN^S DISEASE
     Dosage: CITRATE FREE
     Route: 058
     Dates: end: 20191115

REACTIONS (9)
  - Deafness [Unknown]
  - Pneumonia [Recovered/Resolved]
  - Hypoacusis [Unknown]
  - Tremor [Unknown]
  - Chronic obstructive pulmonary disease [Not Recovered/Not Resolved]
  - Sinusitis [Unknown]
  - Dysphagia [Unknown]
  - Ear discomfort [Unknown]
  - Ear infection [Unknown]
